FAERS Safety Report 20726123 (Version 1)
Quarter: 2022Q2

REPORT INFORMATION
  Report Type: Spontaneous
  Country: US (occurrence: US)
  Receive Date: 20220419
  Receipt Date: 20220419
  Transmission Date: 20220720
  Serious: No
  Sender: FDA-Public Use
  Company Number: US-PFIZER INC-202100944443

PATIENT
  Age: 80 Year
  Sex: Female
  Weight: 62.6 kg

DRUGS (7)
  1. CELEBREX [Suspect]
     Active Substance: CELECOXIB
     Indication: Arthritis
     Dosage: UNK, 1X/DAY (EITHER 100MG OR 200MG BUT CAN^T REMEMBER WHICH, ONCE DAILY)
     Dates: end: 202106
  2. AMLODIPINE [Concomitant]
     Active Substance: AMLODIPINE BESYLATE
     Dosage: 5 MG, 1X/DAY (5MG ONCE DAILY)
  3. BENAZEPRIL HYDROCHLORIDE [Concomitant]
     Active Substance: BENAZEPRIL HYDROCHLORIDE
     Dosage: 20 MG, 1X/DAY (20MG ONCE DAILY)
  4. OMEPRAZOLE [Concomitant]
     Active Substance: OMEPRAZOLE
     Indication: Gastric ulcer
     Dosage: 40 MG, 1X/DAY (40MG ONCE DAILY)
  5. METFORMIN [Concomitant]
     Active Substance: METFORMIN HYDROCHLORIDE
     Dosage: 500 MG, 2X/DAY (500MG TWICE DAILY)
  6. PRAVASTATIN [Concomitant]
     Active Substance: PRAVASTATIN
     Dosage: 20 MG, 1X/DAY (20MG ONCE DAILY)
  7. ESTRACE [Concomitant]
     Active Substance: ESTRADIOL
     Indication: Urinary tract infection
     Dosage: 0.1 UNK (0.1MG/GM 3 TIMES A WEEK USED IN HER VAGINA)

REACTIONS (1)
  - Arthritis [Not Recovered/Not Resolved]

NARRATIVE: CASE EVENT DATE: 20210601
